FAERS Safety Report 24537967 (Version 1)
Quarter: 2024Q4

REPORT INFORMATION
  Report Type: Spontaneous
  Country: DE (occurrence: DE)
  Receive Date: 20241023
  Receipt Date: 20241023
  Transmission Date: 20250115
  Serious: Yes (Life-Threatening, Hospitalization, Other)
  Sender: SANDOZ
  Company Number: DE-NOVPHSZ-PHHY2019DE147667

PATIENT
  Age: 53 Year
  Sex: Female

DRUGS (2)
  1. VALPROATE SODIUM [Suspect]
     Active Substance: VALPROATE SODIUM
     Dosage: 2000 MG, QD
     Route: 048
     Dates: start: 20190420, end: 20190603
  2. VALPROATE SODIUM [Suspect]
     Active Substance: VALPROATE SODIUM
     Indication: Mania
     Dosage: 2000 MG, BID
     Route: 048
     Dates: start: 20190419

REACTIONS (6)
  - Anaphylactic shock [Recovering/Resolving]
  - Hyperventilation [Unknown]
  - Hypotension [Unknown]
  - Vomiting [Recovered/Resolved]
  - Muscle spasms [Recovering/Resolving]
  - Incorrect dose administered [Unknown]

NARRATIVE: CASE EVENT DATE: 20190419
